FAERS Safety Report 5342192-6 (Version None)
Quarter: 2007Q2

REPORT INFORMATION
  Report Type: 
  Country: None (occurrence: None)
  Receive Date: 20070601
  Receipt Date: 20070529
  Transmission Date: 20071010
  Serious: Yes (Other)
  Sender: FDA-Public Use
  Company Number: D0053423A

PATIENT

DRUGS (1)
  1. LAMICTAL [Suspect]
     Route: 048
     Dates: start: 20070101

REACTIONS (1)
  - OSTEONECROSIS [None]
